FAERS Safety Report 7449231-7 (Version None)
Quarter: 2011Q2

REPORT INFORMATION
  Report Type: 
  Country: None (occurrence: None)
  Receive Date: 20110502
  Receipt Date: 20110422
  Transmission Date: 20111010
  Serious: Yes (Death)
  Sender: FDA-Public Use
  Company Number: US-BIOGENIDEC-2011BI015810

PATIENT
  Age: 67 Year
  Sex: Female

DRUGS (2)
  1. AVONEX [Suspect]
     Indication: MULTIPLE SCLEROSIS
     Route: 030
     Dates: start: 20031024, end: 20100101
  2. BETASERON [Concomitant]
     Indication: MULTIPLE SCLEROSIS

REACTIONS (1)
  - PNEUMONIA [None]
